FAERS Safety Report 24782810 (Version 1)
Quarter: 2024Q4

REPORT INFORMATION
  Report Type: Spontaneous
  Country: JP (occurrence: JP)
  Receive Date: 20241227
  Receipt Date: 20241227
  Transmission Date: 20250114
  Serious: Yes (Other)
  Sender: JOHNSON AND JOHNSON
  Company Number: JP-MTPC-MTPC2024-0025603

PATIENT
  Age: 46 Year
  Sex: Male

DRUGS (1)
  1. REMICADE [Suspect]
     Active Substance: INFLIXIMAB
     Indication: Crohn^s disease
     Dosage: UNK, Q8WEEKS
     Route: 041

REACTIONS (4)
  - Anal fistula [Recovered/Resolved]
  - Anal fistula [Recovered/Resolved]
  - Lupus-like syndrome [Recovering/Resolving]
  - Photosensitivity reaction [Unknown]
